FAERS Safety Report 23522236 (Version 2)
Quarter: 2024Q1

REPORT INFORMATION
  Report Type: Report from Study
  Country: US (occurrence: US)
  Receive Date: 20240214
  Receipt Date: 20240218
  Transmission Date: 20240410
  Serious: Yes (Other)
  Sender: FDA-Public Use
  Company Number: US-ABBVIE-5631520

PATIENT
  Age: 60 Year
  Sex: Male
  Weight: 86.18 kg

DRUGS (1)
  1. SKYRIZI [Suspect]
     Active Substance: RISANKIZUMAB-RZAA
     Indication: Psoriasis
     Route: 058
     Dates: start: 20211115

REACTIONS (4)
  - Wound secretion [Recovering/Resolving]
  - Pain [Not Recovered/Not Resolved]
  - Osteomyelitis [Recovering/Resolving]
  - Swelling [Not Recovered/Not Resolved]

NARRATIVE: CASE EVENT DATE: 20230701
